FAERS Safety Report 12418653 (Version 1)
Quarter: 2016Q2

REPORT INFORMATION
  Report Type: Spontaneous
  Country: DE (occurrence: DE)
  Receive Date: 20160531
  Receipt Date: 20160531
  Transmission Date: 20160815
  Serious: Yes (Other)
  Sender: FDA-Public Use
  Company Number: DE-ALKEM-001675

PATIENT
  Age: 73 Year
  Sex: Male

DRUGS (6)
  1. AMLODIPINE [Suspect]
     Active Substance: AMLODIPINE BESYLATE
     Indication: HYPERTENSION
     Dosage: FOR A LONGER PERIOD
  2. SIMVASTATIN. [Interacting]
     Active Substance: SIMVASTATIN
     Indication: HYPERCHOLESTEROLAEMIA
  3. MYCOPHENOLIC ACID. [Concomitant]
     Active Substance: MYCOPHENOLIC ACID
     Indication: IMMUNOSUPPRESSION
  4. CICLOSPORIN [Interacting]
     Active Substance: CYCLOSPORINE
     Indication: IMMUNOSUPPRESSION
  5. CIPROFLOXACIN. [Interacting]
     Active Substance: CIPROFLOXACIN
     Indication: DIARRHOEA
  6. PREDNISOLONE. [Concomitant]
     Active Substance: PREDNISOLONE
     Indication: IMMUNOSUPPRESSION

REACTIONS (2)
  - Drug interaction [Unknown]
  - Rhabdomyolysis [Recovering/Resolving]
